FAERS Safety Report 22234802 (Version 1)
Quarter: 2023Q2

REPORT INFORMATION
  Report Type: Spontaneous
  Country: CN (occurrence: CN)
  Receive Date: 20230420
  Receipt Date: 20230420
  Transmission Date: 20230722
  Serious: Yes (Hospitalization, Other)
  Sender: FDA-Public Use
  Company Number: CN-009507513-2304CHN005609

PATIENT
  Age: 75 Year
  Sex: Male
  Weight: 52.5 kg

DRUGS (2)
  1. INVANZ [Suspect]
     Active Substance: ERTAPENEM SODIUM
     Indication: Pneumonia
     Dosage: 1 G QD
     Route: 041
     Dates: start: 20221227, end: 20230102
  2. PAXLOVID [Suspect]
     Active Substance: NIRMATRELVIR\RITONAVIR
     Indication: COVID-19 pneumonia
     Dosage: 3 TABLETS Q12H
     Route: 048
     Dates: start: 20221228, end: 20230101

REACTIONS (2)
  - Hepatic function abnormal [Recovering/Resolving]
  - COVID-19 pneumonia [Unknown]

NARRATIVE: CASE EVENT DATE: 20230111
